FAERS Safety Report 10059796 (Version 3)
Quarter: 2014Q2

REPORT INFORMATION
  Report Type: Spontaneous
  Country: US (occurrence: None)
  Receive Date: 20140402
  Receipt Date: 20140423
  Transmission Date: 20141212
  Serious: Yes (Hospitalization, Other)
  Sender: FDA-Public Use
  Company Number: AUR-APL-2014-03970

PATIENT
  Age: 60 Year
  Sex: Female

DRUGS (1)
  1. CEFTRIAXONE [Suspect]
     Indication: PERITONITIS BACTERIAL

REACTIONS (17)
  - Respiratory failure [None]
  - Septic shock [None]
  - Haemodialysis [None]
  - Anaemia [None]
  - Thrombocytopenia [None]
  - Coagulopathy [None]
  - Listeria test positive [None]
  - Blood culture positive [None]
  - Retroperitoneal haematoma [None]
  - Oesophageal varices haemorrhage [None]
  - Multi-organ failure [None]
  - Bronchopulmonary aspergillosis [None]
  - Peritonitis bacterial [None]
  - Listeriosis [None]
  - Renal failure acute [None]
  - Lactic acidosis [None]
  - No therapeutic response [None]
